FAERS Safety Report 15411717 (Version 2)
Quarter: 2018Q3

REPORT INFORMATION
  Report Type: Spontaneous
  Country: US (occurrence: US)
  Receive Date: 20180921
  Receipt Date: 20180924
  Transmission Date: 20181010
  Serious: No
  Sender: FDA-Public Use
  Company Number: US-PFIZER INC-2018376497

PATIENT
  Age: 69 Year
  Sex: Male
  Weight: 93 kg

DRUGS (1)
  1. IBRANCE [Suspect]
     Active Substance: PALBOCICLIB
     Indication: PANCREATIC CARCINOMA METASTATIC
     Dosage: 125 MG, 1X/DAY
     Route: 048
     Dates: start: 2018

REACTIONS (2)
  - Product use in unapproved indication [Unknown]
  - Cough [Not Recovered/Not Resolved]

NARRATIVE: CASE EVENT DATE: 2018
